FAERS Safety Report 4498850-9 (Version None)
Quarter: 2004Q4

REPORT INFORMATION
  Report Type: 
  Country: None (occurrence: None)
  Receive Date: 20041110
  Receipt Date: 20041110
  Transmission Date: 20050328
  Serious: No
  Sender: FDA-Public Use
  Company Number: None

PATIENT
  Age: 63 Year
  Sex: Male

DRUGS (2)
  1. FOSINOPRIL SODIUM [Suspect]
     Indication: DIABETES MELLITUS
  2. FOSINOPRIL SODIUM [Suspect]
     Indication: HYPERTENSION

REACTIONS (2)
  - DRUG HYPERSENSITIVITY [None]
  - SWOLLEN TONGUE [None]
